FAERS Safety Report 23046551 (Version 1)
Quarter: 2023Q4

REPORT INFORMATION
  Report Type: Spontaneous
  Country: IT (occurrence: IT)
  Receive Date: 20231009
  Receipt Date: 20231009
  Transmission Date: 20240109
  Serious: Yes (Death, Other)
  Sender: FDA-Public Use
  Company Number: IT-AMGEN-ITASP2023175416

PATIENT

DRUGS (5)
  1. CARFILZOMIB [Suspect]
     Active Substance: CARFILZOMIB
     Indication: Plasma cell myeloma
     Dosage: UNK
     Route: 065
  2. POMALIDOMIDE [Concomitant]
     Active Substance: POMALIDOMIDE
     Indication: Plasma cell myeloma
     Dosage: UNK
  3. DEXAMETHASONE [Concomitant]
     Active Substance: DEXAMETHASONE
     Indication: Plasma cell myeloma
     Dosage: UNK
  4. TIXAGEVIMAB [Concomitant]
     Active Substance: TIXAGEVIMAB
     Dosage: 150 MILLIGRAM
     Route: 065
  5. CILGAVIMAB [Concomitant]
     Active Substance: CILGAVIMAB
     Dosage: 150 MILLIGRAM
     Route: 065

REACTIONS (1)
  - COVID-19 [Fatal]
